FAERS Safety Report 7493159-3 (Version None)
Quarter: 2011Q2

REPORT INFORMATION
  Report Type: 
  Country: None (occurrence: None)
  Receive Date: 20110520
  Receipt Date: 20110505
  Transmission Date: 20111010
  Serious: Yes (Other)
  Sender: FDA-Public Use
  Company Number: GB-JNJFOC-20110508287

PATIENT
  Age: 46 Year
  Sex: Female
  Weight: 85 kg

DRUGS (3)
  1. INFLIXIMAB, RECOMBINANT [Suspect]
     Indication: RHEUMATOID ARTHRITIS
     Route: 042
     Dates: start: 20050511
  2. INFLIXIMAB, RECOMBINANT [Suspect]
     Route: 042
     Dates: start: 20031125, end: 20040107
  3. METHOTREXATE [Concomitant]
     Dates: start: 20031125

REACTIONS (3)
  - JOINT ARTHROPLASTY [None]
  - POST PROCEDURAL COMPLICATION [None]
  - WOUND INFECTION [None]
